FAERS Safety Report 10019403 (Version 1)
Quarter: 2014Q1

REPORT INFORMATION
  Report Type: Spontaneous
  Country: PL (occurrence: PL)
  Receive Date: 20140318
  Receipt Date: 20140318
  Transmission Date: 20141002
  Serious: Yes (Life-Threatening, Hospitalization)
  Sender: FDA-Public Use
  Company Number: PL-BAXTER-2014BAX012042

PATIENT
  Sex: Female
  Weight: 70 kg

DRUGS (1)
  1. ENDOXAN [Suspect]
     Indication: CHRONIC LYMPHOCYTIC LEUKAEMIA
     Route: 042
     Dates: start: 20140225, end: 20140225

REACTIONS (6)
  - Bronchiectasis [Unknown]
  - Condition aggravated [Unknown]
  - Respiratory failure [Unknown]
  - Pancytopenia [Unknown]
  - Agranulocytosis [Unknown]
  - Febrile neutropenia [Unknown]
